FAERS Safety Report 24701319 (Version 1)
Quarter: 2024Q4

REPORT INFORMATION
  Report Type: Spontaneous
  Country: CN (occurrence: CN)
  Receive Date: 20241205
  Receipt Date: 20241205
  Transmission Date: 20250114
  Serious: Yes (Hospitalization, Other)
  Sender: PFIZER
  Company Number: CN-PFIZER INC-PV202400156537

PATIENT
  Age: 53 Year
  Sex: Male
  Weight: 71 kg

DRUGS (7)
  1. CYTARABINE [Suspect]
     Active Substance: CYTARABINE
     Indication: Acute myeloid leukaemia
     Dosage: 3000.000 MG, 2X/DAY (D1, D3, D5)
     Route: 041
     Dates: start: 20241114, end: 20241114
  2. CYTARABINE [Suspect]
     Active Substance: CYTARABINE
     Dosage: 3000 MG, 2X/DAY (D1, D3, D5)
     Route: 041
     Dates: start: 20241116, end: 20241116
  3. CYTARABINE [Suspect]
     Active Substance: CYTARABINE
     Dosage: 3000 MG, 2X/DAY (D1, D3, D5)
     Route: 041
     Dates: start: 20241118, end: 20241118
  4. VENETOCLAX [Suspect]
     Active Substance: VENETOCLAX
     Indication: Acute myeloid leukaemia
     Dosage: 100.000 MG, 1X/DAY (D3)
     Route: 048
     Dates: start: 20241116, end: 20241116
  5. VENETOCLAX [Suspect]
     Active Substance: VENETOCLAX
     Dosage: 200 MG, 1X/DAY (D4)
     Route: 048
     Dates: start: 20241117, end: 20241117
  6. VENETOCLAX [Suspect]
     Active Substance: VENETOCLAX
     Dosage: 400 MG, 1X/DAY (D5)
     Route: 048
     Dates: start: 20241118, end: 20241118
  7. POSACONAZOLE [Concomitant]
     Active Substance: POSACONAZOLE
     Indication: Prophylaxis
     Dosage: 300.000 MG, 1X/DAY
     Route: 048
     Dates: start: 20241122, end: 20241128

REACTIONS (2)
  - Myelosuppression [Recovering/Resolving]
  - Immunodeficiency [Unknown]

NARRATIVE: CASE EVENT DATE: 20241122
